FAERS Safety Report 16815229 (Version 1)
Quarter: 2019Q4

REPORT INFORMATION
  Report Type: Spontaneous
  Country: US (occurrence: US)
  Receive Date: 20190916
  Receipt Date: 20190916
  Transmission Date: 20200122
  Serious: Yes (Disabling, Other)
  Sender: FDA-Public Use
  Company Number: None

PATIENT
  Age: 75 Year
  Sex: Male
  Weight: 103.5 kg

DRUGS (3)
  1. SIMVASTIN [Concomitant]
     Active Substance: SIMVASTATIN
  2. ADVIL [Concomitant]
     Active Substance: IBUPROFEN
  3. DEXTROAMPHET SACCHARAT, AMPHET ASPARTATE, DEXTROAMPHET SULFATE AND AMPHET SULFAT [Suspect]
     Active Substance: AMPHETAMINE ASPARTATE\AMPHETAMINE SULFATE\DEXTROAMPHETAMINE SACCHARATE\DEXTROAMPHETAMINE SULFATE
     Indication: NARCOLEPSY
     Dosage: ?          QUANTITY:90 TABLET(S);?
     Route: 048
     Dates: start: 20190912, end: 20190916

REACTIONS (5)
  - Narcolepsy [None]
  - Product complaint [None]
  - Manufacturing materials issue [None]
  - Product formulation issue [None]
  - Symptom recurrence [None]

NARRATIVE: CASE EVENT DATE: 20190912
